FAERS Safety Report 18019621 (Version 1)
Quarter: 2020Q3

REPORT INFORMATION
  Report Type: Spontaneous
  Country: FR (occurrence: FR)
  Receive Date: 20200714
  Receipt Date: 20200714
  Transmission Date: 20201103
  Serious: Yes (Hospitalization)
  Sender: FDA-Public Use
  Company Number: FR-ACCORD-190087

PATIENT
  Age: 93 Year
  Sex: Male
  Weight: 68.9 kg

DRUGS (7)
  1. ALTIZIDE [Suspect]
     Active Substance: ALTHIAZIDE
     Indication: HYPERTENSION
     Route: 048
  2. GALANTAMINE. [Suspect]
     Active Substance: GALANTAMINE
     Indication: DEMENTIA ALZHEIMER^S TYPE
     Route: 048
     Dates: end: 20200605
  3. SPIRONOLACTONE. [Suspect]
     Active Substance: SPIRONOLACTONE
     Indication: HYPERTENSION
     Route: 048
  4. LERCANIDIPINE [Suspect]
     Active Substance: LERCANIDIPINE
     Indication: HYPERTENSION
     Route: 048
  5. TANAKAN [Suspect]
     Active Substance: GINKGO
     Indication: PRODUCT USED FOR UNKNOWN INDICATION
     Dosage: STENGTH 40 MG
     Route: 048
     Dates: end: 20200605
  6. TIANEPTINE [Suspect]
     Active Substance: TIANEPTINE
     Indication: PRODUCT USED FOR UNKNOWN INDICATION
     Route: 048
  7. ACETYLSALICYLIC ACID [Suspect]
     Active Substance: ASPIRIN
     Indication: PRODUCT USED FOR UNKNOWN INDICATION
     Dosage: STRENGTH 75 MG
     Route: 048
     Dates: end: 20200605

REACTIONS (6)
  - Fall [Unknown]
  - Hemiplegia [Not Recovered/Not Resolved]
  - Epilepsy [Recovered/Resolved]
  - Aphasia [Not Recovered/Not Resolved]
  - Cerebral haemorrhage [Recovering/Resolving]
  - Subarachnoid haemorrhage [Recovering/Resolving]

NARRATIVE: CASE EVENT DATE: 20200605
